FAERS Safety Report 14300821 (Version 1)
Quarter: 2017Q4

REPORT INFORMATION
  Report Type: Spontaneous
  Country: US (occurrence: US)
  Receive Date: 20171219
  Receipt Date: 20171219
  Transmission Date: 20180321
  Serious: No
  Sender: FDA-Public Use
  Company Number: US-ASTRAZENECA-2017SF24741

PATIENT
  Sex: Female

DRUGS (1)
  1. SYMBICORT [Suspect]
     Active Substance: BUDESONIDE\FORMOTEROL FUMARATE DIHYDRATE
     Dosage: 80/4.5MCG TWICE A DAY
     Route: 055

REACTIONS (4)
  - Ageusia [Not Recovered/Not Resolved]
  - Product quality issue [Not Recovered/Not Resolved]
  - Memory impairment [Unknown]
  - Pain [Unknown]
